FAERS Safety Report 8611839-0 (Version None)
Quarter: 2012Q3

REPORT INFORMATION
  Report Type: 
  Country: None (occurrence: None)
  Receive Date: 20120822
  Receipt Date: 20120813
  Transmission Date: 20120928
  Serious: Yes (Hospitalization, Other)
  Sender: FDA-Public Use
  Company Number: US-BAYER-2011-107437

PATIENT
  Age: 30 Year
  Sex: Female
  Weight: 83 kg

DRUGS (12)
  1. MAXALT [Concomitant]
     Dosage: UNK
     Dates: start: 20100101
  2. YAZ [Suspect]
     Indication: ACNE
     Dosage: UNK
     Dates: start: 20081028, end: 20091015
  3. METFORMIN [Concomitant]
     Dosage: UNK
     Dates: start: 20090101
  4. ALDACTONE [POTASSIUM CANRENOATE] [Concomitant]
     Dosage: UNK
     Dates: start: 20050101
  5. DROSPIRENONE AND ETHINYL ESTRADIOL [Suspect]
     Indication: ACNE
     Dosage: UNK
     Dates: start: 20081028, end: 20091015
  6. TORADOL [Concomitant]
     Indication: HEADACHE
     Dosage: 30 MG, UNK
     Route: 042
     Dates: start: 20091123
  7. VITAMIN TAB [Concomitant]
     Dosage: UNK
     Dates: start: 20100113
  8. REGLAN [Concomitant]
     Indication: NAUSEA
     Dosage: 10 MG, UNK
     Route: 042
     Dates: start: 20091123
  9. MOTRIN [Concomitant]
     Indication: PAIN
     Dosage: 800 MG, PRN
     Route: 048
     Dates: start: 20091123, end: 20091229
  10. ANTIBIOTICS [Concomitant]
     Indication: ABDOMINAL PAIN UPPER
     Dosage: UNK
     Dates: start: 20100210
  11. SPIRONOLACTONE [Concomitant]
     Dosage: UNK
     Dates: start: 20020101, end: 20090101
  12. ALDOSTERONE [Concomitant]
     Dosage: UNK
     Dates: start: 20010101

REACTIONS (6)
  - PERIHEPATIC ABSCESS [None]
  - CHOLELITHIASIS [None]
  - ABDOMINAL PAIN UPPER [None]
  - CHOLECYSTITIS CHRONIC [None]
  - PAIN [None]
  - ABDOMINAL PAIN [None]
